FAERS Safety Report 22618207 (Version 1)
Quarter: 2023Q2

REPORT INFORMATION
  Report Type: Spontaneous
  Country: DE (occurrence: None)
  Receive Date: 20230620
  Receipt Date: 20230620
  Transmission Date: 20230721
  Serious: Yes (Other)
  Sender: FDA-Public Use
  Company Number: 2023A135561

PATIENT
  Sex: Female

DRUGS (7)
  1. FASLODEX [Suspect]
     Active Substance: FULVESTRANT
     Indication: Breast cancer metastatic
     Dosage: THREE YEARS AGO
     Route: 030
  2. PACLITAXEL [Suspect]
     Active Substance: PACLITAXEL
     Indication: Breast cancer metastatic
     Dosage: THREE YEARS AGO
  3. DENOSUMAB [Concomitant]
     Active Substance: DENOSUMAB
     Indication: Prophylaxis
  4. DULOXETINE [Concomitant]
     Active Substance: DULOXETINE
     Indication: Back pain
  5. PREGABALIN [Concomitant]
     Active Substance: PREGABALIN
     Indication: Back pain
  6. METAMIZOLE [Concomitant]
     Active Substance: METAMIZOLE
     Indication: Back pain
  7. HYDROMORPHONE [Concomitant]
     Active Substance: HYDROMORPHONE
     Indication: Back pain

REACTIONS (1)
  - Peripheral sensory neuropathy [Unknown]
